FAERS Safety Report 21206472 (Version 1)
Quarter: 2022Q3

REPORT INFORMATION
  Report Type: Spontaneous
  Country: PT (occurrence: PT)
  Receive Date: 20220812
  Receipt Date: 20220812
  Transmission Date: 20221027
  Serious: Yes (Other)
  Sender: FDA-Public Use
  Company Number: PT-ASTELLAS-2022US028392

PATIENT
  Age: 73 Year
  Sex: Male

DRUGS (2)
  1. ENZALUTAMIDE [Suspect]
     Active Substance: ENZALUTAMIDE
     Indication: Hormone-refractory prostate cancer
     Route: 065
     Dates: start: 20220131
  2. LORAZEPAM [Concomitant]
     Active Substance: LORAZEPAM
     Indication: Product used for unknown indication
     Route: 065

REACTIONS (3)
  - Delirium [Unknown]
  - Hallucination [Unknown]
  - Confusional state [Unknown]

NARRATIVE: CASE EVENT DATE: 20220401
